FAERS Safety Report 21125080 (Version 3)
Quarter: 2022Q3

REPORT INFORMATION
  Report Type: Spontaneous
  Country: SK (occurrence: SK)
  Receive Date: 20220725
  Receipt Date: 20220802
  Transmission Date: 20221026
  Serious: Yes (Other)
  Sender: FDA-Public Use
  Company Number: SK-JNJFOC-20220741909

PATIENT

DRUGS (1)
  1. IMBRUVICA [Suspect]
     Active Substance: IBRUTINIB
     Indication: Chronic lymphocytic leukaemia
     Route: 048

REACTIONS (21)
  - Richter^s syndrome [Unknown]
  - Neoplasm malignant [Unknown]
  - Neutropenia [Unknown]
  - Atrial fibrillation [Unknown]
  - Haemorrhage [Unknown]
  - Thrombocytopenia [Unknown]
  - Basal cell carcinoma [Unknown]
  - Pneumonia [Unknown]
  - Rash [Unknown]
  - Upper respiratory tract infection [Unknown]
  - Rhinitis [Unknown]
  - Hypertension [Unknown]
  - Hyperglycaemia [Unknown]
  - Liver disorder [Unknown]
  - Arthralgia [Unknown]
  - Arthritis [Unknown]
  - Muscle spasms [Unknown]
  - Diarrhoea [Unknown]
  - Colitis [Unknown]
  - Rash [Unknown]
  - Urinary tract infection [Unknown]
